FAERS Safety Report 8472768-9 (Version None)
Quarter: 2012Q2

REPORT INFORMATION
  Report Type: 
  Country: None (occurrence: None)
  Receive Date: 20120627
  Receipt Date: 20120625
  Transmission Date: 20120825
  Serious: Yes (Other)
  Sender: FDA-Public Use
  Company Number: US-ABBOTT-12P-163-0949547-00

PATIENT
  Sex: Female

DRUGS (2)
  1. CONTRACEPTIVES [Concomitant]
     Indication: CONTRACEPTION
     Route: 048
  2. HUMIRA [Suspect]
     Indication: PSORIASIS
     Route: 058
     Dates: start: 20100901, end: 20101101

REACTIONS (1)
  - ABORTION SPONTANEOUS [None]
